FAERS Safety Report 6274590-0 (Version None)
Quarter: 2009Q3

REPORT INFORMATION
  Report Type: 
  Country: None (occurrence: None)
  Receive Date: 20090720
  Receipt Date: 20090714
  Transmission Date: 20100115
  Serious: Yes (Other)
  Sender: FDA-Public Use
  Company Number: US-AVENTIS-200913873US

PATIENT
  Sex: Female

DRUGS (14)
  1. LANTUS [Suspect]
     Indication: TYPE 2 DIABETES MELLITUS
     Route: 051
  2. OPTICLIK GREY [Suspect]
     Indication: TYPE 2 DIABETES MELLITUS
  3. PREDNISONE TAB [Suspect]
     Dosage: DOSE: UNK
     Dates: start: 20090401, end: 20090401
  4. METFORMIN HCL [Concomitant]
     Dosage: DOSE: UNK
  5. ASPIRIN [Concomitant]
     Dosage: DOSE: UNK
  6. PLENDIL [Concomitant]
     Dosage: DOSE: UNK
  7. POTASSIUM CHLORIDE [Concomitant]
     Dosage: DOSE: UNK
  8. PREMARIN [Concomitant]
     Dosage: DOSE: UNK
  9. ACTOS [Concomitant]
     Dosage: DOSE: UNK
  10. DIGOXIN [Concomitant]
     Dosage: DOSE: UNK
  11. LOVASTATIN [Concomitant]
     Dosage: DOSE: UNK
  12. ALPRAZOLAM [Concomitant]
     Dosage: DOSE: UNK
  13. VICODIN [Concomitant]
     Dosage: DOSE: UNK
  14. TYLENOL PM                         /00435101/ [Concomitant]
     Dosage: DOSE: UNK

REACTIONS (3)
  - BLOOD GLUCOSE INCREASED [None]
  - CATARACT [None]
  - TRIGGER FINGER [None]
